FAERS Safety Report 6652509-8 (Version None)
Quarter: 2010Q1

REPORT INFORMATION
  Report Type: 
  Country: None (occurrence: None)
  Receive Date: 20100325
  Receipt Date: 20100325
  Transmission Date: 20100710
  Serious: No
  Sender: FDA-Public Use
  Company Number: None

PATIENT
  Age: 6 Year
  Sex: Male
  Weight: 20 kg

DRUGS (1)
  1. RISPERDAL [Suspect]
     Dosage: 0.4-0.5MG
     Dates: start: 20090101, end: 20100320

REACTIONS (8)
  - ABNORMAL BEHAVIOUR [None]
  - AGGRESSION [None]
  - COMPULSIONS [None]
  - CONDITION AGGRAVATED [None]
  - SCREAMING [None]
  - SELF INJURIOUS BEHAVIOUR [None]
  - SUICIDAL IDEATION [None]
  - UNEVALUABLE EVENT [None]
